FAERS Safety Report 9804393 (Version 3)
Quarter: 2014Q4

REPORT INFORMATION
  Report Type: Spontaneous
  Country: US (occurrence: US)
  Receive Date: 20140108
  Receipt Date: 20141006
  Transmission Date: 20150529
  Serious: Yes (Hospitalization, Other)
  Sender: FDA-Public Use
  Company Number: US-009507513-1401USA002641

PATIENT
  Sex: Female
  Weight: 126.53 kg

DRUGS (1)
  1. NUVARING [Suspect]
     Active Substance: ETHINYL ESTRADIOL\ETONOGESTREL
     Indication: PRODUCT USED FOR UNKNOWN INDICATION
     Dosage: UNK
     Route: 067
     Dates: start: 20100222

REACTIONS (9)
  - Hypercholesterolaemia [Unknown]
  - Salivary gland resection [Unknown]
  - Iron deficiency anaemia [Unknown]
  - Dyslipidaemia [Unknown]
  - Menorrhagia [Unknown]
  - Helicobacter infection [Unknown]
  - Gastrooesophageal reflux disease [Unknown]
  - Headache [Unknown]
  - Pulmonary embolism [Unknown]

NARRATIVE: CASE EVENT DATE: 20100324
